FAERS Safety Report 8178147 (Version 3)
Quarter: 2013Q1

REPORT INFORMATION
  Report Type: Spontaneous
  Country: PA (occurrence: PA)
  Receive Date: 20111012
  Receipt Date: 20130116
  Transmission Date: 20140127
  Serious: Yes (Other)
  Sender: FDA-Public Use
  Company Number: PA-ROCHE-1001051

PATIENT
  Age: 65 Year
  Sex: Female

DRUGS (6)
  1. MABTHERA [Suspect]
     Indication: ARTHRITIS
     Route: 042
     Dates: start: 20101029, end: 20111029
  2. PLAQUENIL [Concomitant]
     Indication: RHEUMATOID ARTHRITIS
  3. ASPIRIN [Concomitant]
     Indication: PROPHYLAXIS
  4. EXFORGE [Concomitant]
     Indication: HYPERTENSION
  5. DOCETAXEL [Concomitant]
     Route: 065
     Dates: start: 20110711
  6. CYCLOPHOSPHAMIDE [Concomitant]
     Route: 065
     Dates: start: 20110711

REACTIONS (3)
  - Breast cancer [Recovered/Resolved]
  - Arthralgia [Unknown]
  - Arthritis [Unknown]
